FAERS Safety Report 4543305-6 (Version None)
Quarter: 2004Q4

REPORT INFORMATION
  Report Type: 
  Country: None (occurrence: None)
  Receive Date: 20041229
  Receipt Date: 20041221
  Transmission Date: 20050328
  Serious: No
  Sender: FDA-Public Use
  Company Number: 2004AP05635

PATIENT
  Age: 86 Year
  Sex: Female

DRUGS (12)
  1. IRESSA [Suspect]
     Indication: NON-SMALL CELL LUNG CANCER
     Dosage: 250 MG DAILY PO
     Route: 048
     Dates: start: 20040214
  2. RADIOTHERAPY [Suspect]
     Indication: NON-SMALL CELL LUNG CANCER
  3. WARFARIN [Concomitant]
  4. BUFFERIN [Concomitant]
  5. BLOPRESS [Concomitant]
  6. HERBESSER ^DELTA^ [Concomitant]
  7. SIGMART [Concomitant]
  8. FERROMIA [Concomitant]
  9. HOKUNALIN [Concomitant]
  10. ZANTAC [Concomitant]
  11. TOWK [Concomitant]
  12. ASPIRIN [Concomitant]

REACTIONS (6)
  - CONJUNCTIVITIS [None]
  - DIARRHOEA [None]
  - HAEMATURIA [None]
  - INGROWING NAIL [None]
  - INTERSTITIAL LUNG DISEASE [None]
  - RADIATION PNEUMONITIS [None]
